FAERS Safety Report 9208672 (Version 1)
Quarter: 2013Q1

REPORT INFORMATION
  Report Type: Spontaneous
  Country: US (occurrence: None)
  Receive Date: 20120806
  Receipt Date: 20120806
  Transmission Date: 20140127
  Serious: Yes (Other)
  Sender: FDA-Public Use
  Company Number: 1796_SP

PATIENT
  Age: 78 Year
  Sex: Male

DRUGS (4)
  1. LEVOFLOXACIN [Suspect]
     Indication: RESPIRATORY TRACT INFECTION
     Route: 042
     Dates: start: 20120406, end: 20120412
  2. LEVOFLOXACIN [Suspect]
     Route: 042
     Dates: start: 20120406, end: 20120412
  3. SOLUMEDROL 40 MG [Concomitant]
  4. PREDNISPME [Concomitant]

REACTIONS (1)
  - Rash [None]
